FAERS Safety Report 19832900 (Version 1)
Quarter: 2021Q3

REPORT INFORMATION
  Report Type: Spontaneous
  Country: GB (occurrence: GB)
  Receive Date: 20210914
  Receipt Date: 20210914
  Transmission Date: 20211014
  Serious: Yes (Life-Threatening)
  Sender: FDA-Public Use
  Company Number: NVSC2021GB207157

PATIENT
  Age: 80 Year
  Sex: Male

DRUGS (2)
  1. CHLORHEXIDINE GLUCONATE. [Suspect]
     Active Substance: CHLORHEXIDINE GLUCONATE
     Indication: PERIPHERAL ENDARTERECTOMY
     Dosage: UNK
     Route: 061
     Dates: start: 20210715
  2. CO?AMOXICLAV [Suspect]
     Active Substance: AMOXICILLIN\CLAVULANATE POTASSIUM
     Indication: PERIPHERAL ENDARTERECTOMY
     Dosage: 600 MG  (OF INTENDED 1.2MG GIVEN)
     Route: 042
     Dates: start: 20210715

REACTIONS (1)
  - Anaphylactic reaction [Recovered/Resolved]

NARRATIVE: CASE EVENT DATE: 20210715
